FAERS Safety Report 5491065-7 (Version None)
Quarter: 2007Q4

REPORT INFORMATION
  Report Type: 
  Country: None (occurrence: None)
  Receive Date: 20071019
  Receipt Date: 20070430
  Transmission Date: 20080405
  Serious: Yes (Life-Threatening, Hospitalization)
  Sender: FDA-Public Use
  Company Number: US-SANOFI-SYNTHELABO-A03200700546

PATIENT
  Sex: Male
  Weight: 104.3 kg

DRUGS (8)
  1. PLAVIX [Suspect]
     Indication: COAGULOPATHY
     Route: 048
     Dates: start: 20031001, end: 20060905
  2. PLAVIX [Suspect]
     Route: 048
     Dates: start: 20060701, end: 20060905
  3. ASPIRIN [Suspect]
     Route: 048
     Dates: start: 20021001, end: 20061005
  4. ANTIHYPERTENSIVES NOS [Concomitant]
     Dosage: UNK
     Route: 048
  5. VYTORIN [Concomitant]
     Dosage: UNK
     Route: 048
     Dates: start: 20050301
  6. LANTUS [Concomitant]
     Dosage: UNK
     Route: 065
     Dates: start: 20050101
  7. HUMALOG [Concomitant]
     Dosage: UNK
     Route: 058
  8. COREG [Concomitant]
     Route: 048
     Dates: start: 20050101

REACTIONS (4)
  - ANAEMIA [None]
  - CONTUSION [None]
  - GASTRIC ULCER HAEMORRHAGE [None]
  - OESOPHAGEAL ADENOCARCINOMA [None]
